FAERS Safety Report 17946428 (Version 1)
Quarter: 2020Q2

REPORT INFORMATION
  Report Type: Spontaneous
  Country: BE (occurrence: BE)
  Receive Date: 20200625
  Receipt Date: 20200625
  Transmission Date: 20200714
  Serious: Yes (Disabling)
  Sender: FDA-Public Use
  Company Number: NVSC2020BE176905

PATIENT
  Age: 35 Year
  Sex: Male
  Weight: 75 kg

DRUGS (1)
  1. OFLOXACINE SANDOZ 200 MG, FILMOMHULDE TABLETTEN [Suspect]
     Active Substance: OFLOXACIN
     Indication: PROSTATITIS
     Dosage: 1 DF, QD (1 PER DAG MET ETEN)
     Route: 048
     Dates: start: 20190807, end: 20190814

REACTIONS (7)
  - Muscular weakness [Unknown]
  - Anxiety [Unknown]
  - Tendon pain [Unknown]
  - Tendon disorder [Unknown]
  - Neuropathy peripheral [Unknown]
  - Gait inability [Unknown]
  - Muscle spasms [Unknown]

NARRATIVE: CASE EVENT DATE: 20190807
